FAERS Safety Report 10037120 (Version 1)
Quarter: 2014Q1

REPORT INFORMATION
  Report Type: Spontaneous
  Country: US (occurrence: None)
  Receive Date: 20140324
  Receipt Date: 20140324
  Transmission Date: 20141002
  Serious: Yes (Hospitalization)
  Sender: FDA-Public Use
  Company Number: 1713747-2014-99927

PATIENT
  Sex: Female

DRUGS (3)
  1. DELFLEX [Suspect]
     Indication: PERITONEAL DIALYSIS
     Dates: start: 201109
  2. DELFLEX [Suspect]
     Indication: RENAL FAILURE CHRONIC
     Dates: start: 201109
  3. LIBERTY CYCLER AND TUBING [Concomitant]

REACTIONS (4)
  - Blood sodium decreased [None]
  - Asthenia [None]
  - Confusional state [None]
  - Hypotension [None]
